FAERS Safety Report 12560790 (Version 2)
Quarter: 2016Q3

REPORT INFORMATION
  Report Type: Report from Study
  Country: US (occurrence: US)
  Receive Date: 20160715
  Receipt Date: 20160725
  Transmission Date: 20161109
  Serious: Yes (Hospitalization)
  Sender: FDA-Public Use
  Company Number: US-ASTRAZENECA-2016SE75808

PATIENT

DRUGS (1)
  1. BRILINTA [Suspect]
     Active Substance: TICAGRELOR
     Route: 048

REACTIONS (7)
  - Limb discomfort [Unknown]
  - Increased tendency to bruise [Unknown]
  - Blood potassium decreased [Unknown]
  - Fall [Unknown]
  - Chest pain [Unknown]
  - Lung disorder [Unknown]
  - Renal disorder [Unknown]
